FAERS Safety Report 14568545 (Version 2)
Quarter: 2018Q1

REPORT INFORMATION
  Report Type: Report from Study
  Country: HR (occurrence: HR)
  Receive Date: 20180223
  Receipt Date: 20180227
  Transmission Date: 20180509
  Serious: Yes (Hospitalization, Other)
  Sender: FDA-Public Use
  Company Number: HR-PFIZER INC-2018073603

PATIENT
  Age: 39 Year
  Sex: Male

DRUGS (2)
  1. DAUNORUBICIN HCL [Suspect]
     Active Substance: DAUNORUBICIN HYDROCHLORIDE
     Indication: ACUTE MYELOID LEUKAEMIA
     Dosage: UNK
     Dates: start: 201504
  2. CYTARABINE. [Suspect]
     Active Substance: CYTARABINE
     Indication: ACUTE MYELOID LEUKAEMIA
     Dosage: UNK
     Dates: start: 201504

REACTIONS (6)
  - Rhabdomyolysis [Unknown]
  - Diarrhoea [Unknown]
  - Febrile neutropenia [Unknown]
  - Skin disorder [Unknown]
  - Cardiac failure [Unknown]
  - Rectal haemorrhage [Unknown]
